FAERS Safety Report 16214379 (Version 4)
Quarter: 2019Q3

REPORT INFORMATION
  Report Type: Spontaneous
  Country: US (occurrence: US)
  Receive Date: 20190418
  Receipt Date: 20190917
  Transmission Date: 20191004
  Serious: Yes (Other)
  Sender: FDA-Public Use
  Company Number: US-ASTRAZENECA-2019SE55621

PATIENT
  Age: 61 Year
  Sex: Female
  Weight: 98.9 kg

DRUGS (66)
  1. PREVACID [Suspect]
     Active Substance: LANSOPRAZOLE
     Indication: GASTROOESOPHAGEAL REFLUX DISEASE
     Route: 065
     Dates: start: 2009
  2. VITAMIN D [Concomitant]
     Active Substance: VITAMIN D NOS
     Indication: SUPPLEMENTATION THERAPY
  3. DONEPEZIL. [Concomitant]
     Active Substance: DONEPEZIL
  4. ONGLYZA [Concomitant]
     Active Substance: SAXAGLIPTIN HYDROCHLORIDE
  5. PRAVACHOL [Concomitant]
     Active Substance: PRAVASTATIN SODIUM
  6. VICTOZA [Concomitant]
     Active Substance: LIRAGLUTIDE
  7. CARAFATE [Concomitant]
     Active Substance: SUCRALFATE
  8. ROBAXIN [Concomitant]
     Active Substance: METHOCARBAMOL
  9. XELJANZ [Concomitant]
     Active Substance: TOFACITINIB CITRATE
  10. PEPTO-BISMOL [Concomitant]
     Active Substance: BISMUTH SUBSALICYLATE
  11. METANX [Concomitant]
     Active Substance: LEVOMEFOLATE CALCIUM\METHYLCOBALAMIN\PYRIDOXAL PHOSPHATE ANHYDROUS
  12. PROVENTIL HFA [Concomitant]
     Active Substance: ALBUTEROL SULFATE
  13. ZANAFLEX [Concomitant]
     Active Substance: TIZANIDINE HYDROCHLORIDE
  14. PRILOSEC [Suspect]
     Active Substance: OMEPRAZOLE MAGNESIUM
     Indication: GASTROOESOPHAGEAL REFLUX DISEASE
     Route: 048
     Dates: start: 2009
  15. TYLENOL [Concomitant]
     Active Substance: ACETAMINOPHEN
     Indication: HEADACHE
  16. TAGAMET HB [Concomitant]
     Active Substance: CIMETIDINE
  17. ELESTAT [Concomitant]
     Active Substance: EPINASTINE HYDROCHLORIDE
  18. DIAZEPAM. [Concomitant]
     Active Substance: DIAZEPAM
  19. ACICLOVIR [Concomitant]
     Active Substance: ACYCLOVIR
  20. LOSARTAN. [Concomitant]
     Active Substance: LOSARTAN
  21. SYMBICORT [Concomitant]
     Active Substance: BUDESONIDE\FORMOTEROL FUMARATE DIHYDRATE
  22. NEXIUM [Suspect]
     Active Substance: ESOMEPRAZOLE MAGNESIUM
     Indication: GASTROOESOPHAGEAL REFLUX DISEASE
     Route: 048
     Dates: start: 2009
  23. PRILOSEC [Suspect]
     Active Substance: OMEPRAZOLE MAGNESIUM
     Indication: GASTROOESOPHAGEAL REFLUX DISEASE
     Route: 048
     Dates: start: 2010, end: 2014
  24. PANTOPRAZOLE [Suspect]
     Active Substance: PANTOPRAZOLE
     Indication: GASTROOESOPHAGEAL REFLUX DISEASE
     Route: 065
     Dates: start: 20110425
  25. GLIMEPIRIDE. [Concomitant]
     Active Substance: GLIMEPIRIDE
  26. AMOXICILLIN. [Concomitant]
     Active Substance: AMOXICILLIN
  27. GLIMEPIRIDE. [Concomitant]
     Active Substance: GLIMEPIRIDE
  28. ROCALTROL [Concomitant]
     Active Substance: CALCITRIOL
  29. APRESOLINE HYDROCHLORIDE [Concomitant]
     Active Substance: HYDRALAZINE HYDROCHLORIDE
  30. LEVEMIR [Concomitant]
     Active Substance: INSULIN DETEMIR
  31. NORCO [Concomitant]
     Active Substance: ACETAMINOPHEN\HYDROCODONE BITARTRATE
  32. ACTOS [Concomitant]
     Active Substance: PIOGLITAZONE HYDROCHLORIDE
  33. ESTRACE [Concomitant]
     Active Substance: ESTRADIOL
  34. AMARYL [Concomitant]
     Active Substance: GLIMEPIRIDE
  35. BACTRIM, SEPTRA [Concomitant]
  36. PLAQUENIL [Concomitant]
     Active Substance: HYDROXYCHLOROQUINE SULFATE
  37. CLARITIN [Concomitant]
     Active Substance: LORATADINE
  38. NEXIUM [Suspect]
     Active Substance: ESOMEPRAZOLE MAGNESIUM
     Indication: GASTROOESOPHAGEAL REFLUX DISEASE
     Route: 048
     Dates: start: 2010, end: 2014
  39. PANTOPRAZOLE [Suspect]
     Active Substance: PANTOPRAZOLE
     Indication: GASTROOESOPHAGEAL REFLUX DISEASE
     Dosage: PROTONIX
     Route: 048
     Dates: start: 20161102
  40. PEPCID AC [Concomitant]
     Active Substance: FAMOTIDINE
  41. BYETTA [Concomitant]
     Active Substance: EXENATIDE
  42. HYDROCHLOROTHIAZIDE. [Concomitant]
     Active Substance: HYDROCHLOROTHIAZIDE
  43. LIPITOR [Concomitant]
     Active Substance: ATORVASTATIN CALCIUM
  44. CYMBALTA [Concomitant]
     Active Substance: DULOXETINE HYDROCHLORIDE
  45. ARICEPT [Concomitant]
     Active Substance: DONEPEZIL HYDROCHLORIDE
  46. LINZESS [Concomitant]
     Active Substance: LINACLOTIDE
  47. ECOTRIN [Concomitant]
     Active Substance: ASPIRIN
  48. DELTASONE [Concomitant]
     Active Substance: PREDNISONE
  49. ZANTAC [Concomitant]
     Active Substance: RANITIDINE HYDROCHLORIDE
  50. ROLAIDS [Concomitant]
     Active Substance: CALCIUM CARBONATE\MAGNESIUM HYDROXIDE
  51. MYLANTA [Concomitant]
     Active Substance: ALUMINUM HYDROXIDE\DIMETHICONE\MAGNESIUM HYDROXIDE
  52. AMLODIPINE [Concomitant]
     Active Substance: AMLODIPINE BESYLATE
  53. CLONAZEPAM. [Concomitant]
     Active Substance: CLONAZEPAM
  54. CALCITROL [Concomitant]
  55. ZYLOPRIM [Concomitant]
     Active Substance: ALLOPURINOL
  56. CIMZIA [Concomitant]
     Active Substance: CERTOLIZUMAB PEGOL
  57. VIBRAMYCIN [Concomitant]
     Active Substance: DOXYCYCLINE
  58. SINGULAIR [Concomitant]
     Active Substance: MONTELUKAST SODIUM
  59. RENA-VITE [Concomitant]
     Active Substance: ASCORBIC ACID\BIOTIN\CALCIUM PANTOTHENATE\CYANOCOBALAMIN\FOLIC ACID\NIACINAMIDE\PYRIDOXINE HYDROCHLORIDE\RIBOFLAVIN\THIAMINE MONONITRATE
  60. PREVACID 24 HR [Suspect]
     Active Substance: LANSOPRAZOLE
     Indication: GASTROOESOPHAGEAL REFLUX DISEASE
     Route: 065
     Dates: start: 2009
  61. MOMETASONE [Concomitant]
     Active Substance: MOMETASONE
  62. AZOR [Concomitant]
     Active Substance: AMLODIPINE BESYLATE\OLMESARTAN MEDOXOMIL
  63. LANTUS [Concomitant]
     Active Substance: INSULIN GLARGINE
  64. ZOVIRAX [Concomitant]
     Active Substance: ACYCLOVIR
  65. THERAGRAN [Concomitant]
     Active Substance: VITAMINS
  66. AZELASTINE. [Concomitant]
     Active Substance: AZELASTINE HYDROCHLORIDE

REACTIONS (4)
  - Acute kidney injury [Unknown]
  - Nephrogenic anaemia [Unknown]
  - Hyperparathyroidism secondary [Unknown]
  - Chronic kidney disease [Not Recovered/Not Resolved]

NARRATIVE: CASE EVENT DATE: 2010
